FAERS Safety Report 19045464 (Version 1)
Quarter: 2021Q1

REPORT INFORMATION
  Report Type: Spontaneous
  Country: US (occurrence: US)
  Receive Date: 20210322
  Receipt Date: 20210322
  Transmission Date: 20210420
  Serious: Yes (Hospitalization, Other)
  Sender: FDA-Public Use
  Company Number: US-GLAXOSMITHKLINE-US2021GSK062451

PATIENT
  Age: 34 Year
  Sex: Female

DRUGS (1)
  1. ALBUTEROL SULFATE. [Suspect]
     Active Substance: ALBUTEROL SULFATE
     Indication: PRODUCT USED FOR UNKNOWN INDICATION
     Dosage: UNK

REACTIONS (7)
  - Drug abuse [Unknown]
  - Tachycardia [Recovered/Resolved]
  - Palpitations [Recovered/Resolved]
  - Hypokalaemia [Recovered/Resolved]
  - Sinus tachycardia [Recovered/Resolved]
  - Lactic acidosis [Recovered/Resolved]
  - Drug level above therapeutic [Unknown]
